FAERS Safety Report 22324422 (Version 1)
Quarter: 2023Q2

REPORT INFORMATION
  Report Type: Spontaneous
  Country: BR (occurrence: BR)
  Receive Date: 20230516
  Receipt Date: 20230516
  Transmission Date: 20230722
  Serious: Yes (Other)
  Sender: FDA-Public Use
  Company Number: BR-002147023-NVSC2023BR108880

PATIENT
  Sex: Female

DRUGS (1)
  1. DIOVAN HCT [Suspect]
     Active Substance: HYDROCHLOROTHIAZIDE\VALSARTAN
     Indication: Hypertension
     Dosage: 320/12.5 MG
     Route: 065

REACTIONS (5)
  - Cataract [Unknown]
  - Renal impairment [Unknown]
  - Diabetes mellitus [Unknown]
  - Dysuria [Unknown]
  - Hypertension [Recovering/Resolving]
